FAERS Safety Report 5913291-2 (Version None)
Quarter: 2008Q4

REPORT INFORMATION
  Report Type: 
  Country: None (occurrence: None)
  Receive Date: 20081008
  Receipt Date: 20081008
  Transmission Date: 20090506
  Serious: Yes (Other)
  Sender: FDA-Public Use
  Company Number: None

PATIENT
  Age: 34 Year
  Sex: Female
  Weight: 58.9676 kg

DRUGS (1)
  1. DUAC [Suspect]
     Indication: ACNE
     Dosage: COVER FACE DAILY TOP
     Route: 061
     Dates: start: 20080930, end: 20081007

REACTIONS (2)
  - RASH GENERALISED [None]
  - URTICARIA [None]
